FAERS Safety Report 21937413 (Version 3)
Quarter: 2023Q1

REPORT INFORMATION
  Report Type: Spontaneous
  Country: US (occurrence: US)
  Receive Date: 20230201
  Receipt Date: 20230331
  Transmission Date: 20230418
  Serious: No
  Sender: FDA-Public Use
  Company Number: US-IDORSIA-003059-2023-US

PATIENT
  Sex: Female

DRUGS (3)
  1. QUVIVIQ [Suspect]
     Active Substance: DARIDOREXANT
     Indication: Insomnia
     Dosage: 25 MG, QD
     Route: 048
     Dates: start: 202211, end: 20230109
  2. LUNESTA [Concomitant]
     Active Substance: ESZOPICLONE
     Indication: Insomnia
  3. FEXOFENADINE [Concomitant]
     Active Substance: FEXOFENADINE HYDROCHLORIDE
     Indication: Hypersensitivity

REACTIONS (7)
  - Feeling jittery [Recovered/Resolved]
  - Nightmare [Recovered/Resolved]
  - Hypervigilance [Recovered/Resolved]
  - Hallucination [Recovered/Resolved]
  - Therapeutic product effect delayed [Unknown]
  - Product storage error [Unknown]
  - Insomnia [Unknown]
